FAERS Safety Report 9820642 (Version 1)
Quarter: 2014Q1

REPORT INFORMATION
  Report Type: Spontaneous
  Country: FR (occurrence: FR)
  Receive Date: 20140116
  Receipt Date: 20140116
  Transmission Date: 20141002
  Serious: Yes (Life-Threatening, Hospitalization)
  Sender: FDA-Public Use
  Company Number: FR-PFIZER INC-2014012054

PATIENT
  Age: 72 Year
  Sex: Female

DRUGS (17)
  1. LYRICA [Suspect]
     Dosage: 25 MG, 3X/DAY
     Route: 048
     Dates: start: 20130924, end: 20131011
  2. ARIXTRA [Suspect]
     Dosage: 2.5 MG/0.5 ML 1X/DAY
     Route: 058
     Dates: start: 20130924, end: 20131011
  3. INEXIUM /01479302/ [Suspect]
     Dosage: 40 MG, 1X/DAY
     Route: 048
     Dates: start: 20130924, end: 20131011
  4. TAHOR [Concomitant]
     Dosage: 10 MG, 1X/DAY
  5. METFORMIN [Concomitant]
     Dosage: 1000 MG, 2X/DAY
     Dates: end: 201309
  6. KARDEGIC [Concomitant]
     Dosage: 75 MG, 1X/DAY
  7. APROVEL [Concomitant]
     Dosage: 300 MG, 1X/DAY
  8. LASILIX [Concomitant]
     Dosage: 40 MG, 1X/DAY
  9. ATARAX [Concomitant]
     Dosage: 25 MG, 1X/DAY
  10. UVEDOSE [Concomitant]
     Dosage: 1 DF, EVERY 3 MONTHS
  11. DOLIPRANE [Concomitant]
     Dosage: 1 G, 3X/DAY
  12. AERIUS [Concomitant]
     Dosage: 1 DF, DAILY
  13. DIAMICRON [Concomitant]
     Dosage: 60 MG, 2X/DAY
     Dates: end: 201309
  14. LANTUS [Concomitant]
     Dosage: UNK
     Dates: start: 201309
  15. NOVORAPID [Concomitant]
     Dosage: UNK
     Dates: start: 201309
  16. CEFOTAXIME [Concomitant]
     Dosage: UNK
     Dates: start: 20130924, end: 20131008
  17. TAVANIC [Concomitant]
     Dosage: UNK
     Dates: start: 20130924, end: 20131004

REACTIONS (1)
  - Thrombocytopenia [Recovered/Resolved]
